FAERS Safety Report 9540302 (Version 1)
Quarter: 2013Q2

REPORT INFORMATION
  Report Type: Spontaneous
  Country: US (occurrence: None)
  Receive Date: 20130531
  Receipt Date: 20130531
  Transmission Date: 20140414
  Serious: Yes (Other)
  Sender: FDA-Public Use
  Company Number: 373522

PATIENT
  Age: 12 Year
  Sex: Female
  Weight: 37.1 kg

DRUGS (1)
  1. NORDITROPIN [Suspect]
     Indication: BODY HEIGHT BELOW NORMAL
     Route: 058
     Dates: start: 201301, end: 20130223

REACTIONS (1)
  - Benign intracranial hypertension [None]
